FAERS Safety Report 20869458 (Version 1)
Quarter: 2022Q2

REPORT INFORMATION
  Report Type: Report from Study
  Country: BR (occurrence: BR)
  Receive Date: 20220524
  Receipt Date: 20220524
  Transmission Date: 20220721
  Serious: Yes (Other)
  Sender: FDA-Public Use
  Company Number: BR-JNJFOC-20220539115

PATIENT
  Age: 78 Year
  Sex: Female
  Weight: 51 kg

DRUGS (3)
  1. INFLIXIMAB [Suspect]
     Active Substance: INFLIXIMAB
     Indication: Rheumatoid arthritis
     Dosage: LAST INFUSION 26-APR-2022.
     Route: 042
     Dates: start: 20190529
  2. MESALAMINE [Concomitant]
     Active Substance: MESALAMINE
     Dosage: 6 TABLETS
  3. PHENOBARBITAL [Concomitant]
     Active Substance: PHENOBARBITAL

REACTIONS (6)
  - Breast cancer [Unknown]
  - Eye operation [Unknown]
  - Fall [Unknown]
  - Tendon dislocation [Unknown]
  - Inflammation [Unknown]
  - Anaemia [Unknown]

NARRATIVE: CASE EVENT DATE: 20220301
